FAERS Safety Report 9802998 (Version 1)
Quarter: 2014Q1

REPORT INFORMATION
  Report Type: Spontaneous
  Country: US (occurrence: None)
  Receive Date: 20140107
  Receipt Date: 20140107
  Transmission Date: 20141002
  Serious: Yes (Death, Hospitalization)
  Sender: FDA-Public Use
  Company Number: None

PATIENT
  Age: 92 Year
  Sex: Female
  Weight: 110.22 kg

DRUGS (16)
  1. PRADAXA [Suspect]
     Indication: ATRIAL FIBRILLATION
     Dosage: 1 PILL, BID, ORAL
     Route: 048
     Dates: start: 20110311, end: 20131224
  2. FUROSEMIDE [Concomitant]
  3. TOPROL [Concomitant]
  4. HYDRALAZINE [Concomitant]
  5. SYNTHROID [Concomitant]
  6. CYMBALTA [Concomitant]
  7. FEMARA [Concomitant]
  8. PRILOSEC [Concomitant]
  9. VIACTIV CHEW [Concomitant]
  10. MVI [Concomitant]
  11. VITAMIN D3 [Concomitant]
  12. ASA [Concomitant]
  13. SENNA [Concomitant]
  14. ACETAMINOPHEN [Concomitant]
  15. ADVAIR [Concomitant]
  16. KCL [Concomitant]

REACTIONS (5)
  - Haemorrhage [None]
  - Haematoma [None]
  - Systemic inflammatory response syndrome [None]
  - Sepsis [None]
  - Wound infection staphylococcal [None]
